FAERS Safety Report 14418777 (Version 1)
Quarter: 2018Q1

REPORT INFORMATION
  Report Type: Spontaneous
  Country: US (occurrence: US)
  Receive Date: 20180122
  Receipt Date: 20180122
  Transmission Date: 20180509
  Serious: No
  Sender: FDA-Public Use
  Company Number: US-009507513-1801USA007194

PATIENT
  Age: 4 Year
  Sex: Female

DRUGS (4)
  1. CUBICIN [Suspect]
     Active Substance: DAPTOMYCIN
     Indication: BACTERIAL ABDOMINAL INFECTION
     Dosage: 158 MG (10 MG/KG), Q24H
     Route: 042
  2. ANTIMICROBIAL (UNSPECIFIED) [Concomitant]
     Active Substance: UNSPECIFIED INGREDIENT
     Indication: BACTERIAL ABDOMINAL INFECTION
     Dosage: UNK
  3. CUBICIN [Suspect]
     Active Substance: DAPTOMYCIN
     Dosage: 190 MG (12 MG/KG), Q24H
     Route: 042
  4. CUBICIN [Suspect]
     Active Substance: DAPTOMYCIN
     Dosage: 400 MG (25 MG/KG), Q24H
     Route: 042

REACTIONS (2)
  - Intentional overdose [Unknown]
  - Off label use [Unknown]
